FAERS Safety Report 18845009 (Version 1)
Quarter: 2021Q1

REPORT INFORMATION
  Report Type: Spontaneous
  Country: US (occurrence: US)
  Receive Date: 20210204
  Receipt Date: 20210204
  Transmission Date: 20210419
  Serious: Yes (Disabling, Other)
  Sender: FDA-Public Use
  Company Number: None

PATIENT
  Age: 41 Year
  Sex: Female
  Weight: 87.3 kg

DRUGS (13)
  1. PANTOPRAZOLE [Suspect]
     Active Substance: PANTOPRAZOLE
     Indication: GASTROOESOPHAGEAL REFLUX DISEASE
     Route: 048
     Dates: start: 20201221, end: 20210104
  2. PROBIOTIC [Concomitant]
     Active Substance: PROBIOTICS NOS
  3. MAGNESIUM [Concomitant]
     Active Substance: MAGNESIUM
  4. IRON [Concomitant]
     Active Substance: IRON
  5. ATIVAN [Concomitant]
     Active Substance: LORAZEPAM
  6. PEPCID AC ORIGINAL STRENGTH [Suspect]
     Active Substance: FAMOTIDINE
     Indication: GASTROOESOPHAGEAL REFLUX DISEASE
     Route: 048
     Dates: start: 20210105, end: 20210202
  7. LEXAPRO [Concomitant]
     Active Substance: ESCITALOPRAM OXALATE
  8. CHAMOMILE TEA [Concomitant]
     Active Substance: MATRICARIA RECUTITA
  9. MELATONIN [Concomitant]
     Active Substance: MELATONIN
  10. PANTOPRAZOLE [Suspect]
     Active Substance: PANTOPRAZOLE
     Indication: DYSPNOEA
     Route: 048
     Dates: start: 20201221, end: 20210104
  11. DAILY VITAMINS [Concomitant]
     Active Substance: VITAMINS
  12. PANTOPRAZOLE [Suspect]
     Active Substance: PANTOPRAZOLE
     Indication: ANGINA PECTORIS
     Route: 048
     Dates: start: 20201221, end: 20210104
  13. VITAMIN B12 [Concomitant]
     Active Substance: CYANOCOBALAMIN

REACTIONS (3)
  - Panic attack [None]
  - Anxiety [None]
  - Dysphagia [None]

NARRATIVE: CASE EVENT DATE: 20201223
